FAERS Safety Report 8304125-X (Version None)
Quarter: 2012Q2

REPORT INFORMATION
  Report Type: 
  Country: None (occurrence: None)
  Receive Date: 20120423
  Receipt Date: 20120417
  Transmission Date: 20120825
  Serious: No
  Sender: FDA-Public Use
  Company Number: US-PFIZER INC-2012095387

PATIENT
  Sex: Male
  Weight: 90.703 kg

DRUGS (2)
  1. GEODON [Suspect]
     Indication: MENTAL DISORDER
     Dosage: 80 MG, 2X/DAY
     Route: 048
  2. KLONOPIN [Concomitant]
     Dosage: UNK

REACTIONS (2)
  - HEADACHE [None]
  - MUSCLE SPASMS [None]
